FAERS Safety Report 4908151-X (Version None)
Quarter: 2006Q1

REPORT INFORMATION
  Report Type: 
  Country: None (occurrence: None)
  Receive Date: 20060113
  Receipt Date: 20050519
  Transmission Date: 20060701
  Serious: Yes (Other)
  Sender: FDA-Public Use
  Company Number: HQWYE911924MAY05

PATIENT
  Age: 65 Year
  Sex: Female
  Weight: 81.72 kg

DRUGS (6)
  1. PREMPRO [Suspect]
     Indication: HORMONE REPLACEMENT THERAPY
     Dosage: ORAL
     Route: 048
     Dates: start: 19890101
  2. PREMPRO [Suspect]
     Indication: MENOPAUSAL SYMPTOMS
     Dosage: ORAL
     Route: 048
     Dates: start: 19890101
  3. CYCRIN [Suspect]
     Indication: MENOPAUSAL SYMPTOMS
     Dosage: 10 MG 1X PER 1 DAY;
     Dates: start: 19900101
  4. MEDROXYPROGESTERONE [Suspect]
     Indication: MENOPAUSAL SYMPTOMS
     Dosage: 2.5 MG, DAILY
     Dates: start: 19900101, end: 20010101
  5. PREMARIN [Suspect]
     Indication: MENOPAUSAL SYMPTOMS
     Dosage: , ORAL
     Route: 048
     Dates: start: 19900101, end: 20010101
  6. SYNTHROID [Concomitant]

REACTIONS (1)
  - BREAST CANCER [None]
